FAERS Safety Report 6411593-7 (Version None)
Quarter: 2009Q4

REPORT INFORMATION
  Report Type: 
  Country: None (occurrence: None)
  Receive Date: 20091023
  Receipt Date: 20091015
  Transmission Date: 20100525
  Serious: Yes (Hospitalization)
  Sender: FDA-Public Use
  Company Number: US-JNJFOC-20091005860

PATIENT
  Age: 81 Year
  Sex: Female

DRUGS (2)
  1. DURAGESIC-100 [Suspect]
     Route: 062
     Dates: start: 20090501, end: 20091009
  2. DURAGESIC-100 [Suspect]
     Indication: PAIN
     Route: 062
     Dates: start: 20090501, end: 20091009

REACTIONS (4)
  - DRUG PRESCRIBING ERROR [None]
  - GANGRENE [None]
  - MEGACOLON [None]
  - WITHDRAWAL SYNDROME [None]
